FAERS Safety Report 5006647-6 (Version None)
Quarter: 2006Q2

REPORT INFORMATION
  Report Type: 
  Country: None (occurrence: None)
  Receive Date: 20060519
  Receipt Date: 20060511
  Transmission Date: 20061013
  Serious: Yes (Hospitalization)
  Sender: FDA-Public Use
  Company Number: 2006UW09506

PATIENT
  Age: 58 Year
  Sex: Female

DRUGS (5)
  1. ARIMIDEX [Suspect]
     Indication: BREAST CANCER
     Route: 048
     Dates: start: 20060424, end: 20060505
  2. DIOVAN HCT [Concomitant]
     Indication: HYPERTENSION
     Dosage: 80/12.5
     Route: 048
  3. LOSEC [Concomitant]
     Indication: REFLUX OESOPHAGITIS
     Route: 048
  4. ATENOLOL [Concomitant]
     Indication: HYPERTENSION
     Route: 048
  5. CALCITE VITAMIN D [Concomitant]
     Route: 048

REACTIONS (6)
  - ANXIETY [None]
  - CONFUSIONAL STATE [None]
  - CRYING [None]
  - DELIRIUM [None]
  - IRRITABILITY [None]
  - MANIA [None]
